FAERS Safety Report 15974659 (Version 2)
Quarter: 2019Q1

REPORT INFORMATION
  Report Type: Spontaneous
  Country: US (occurrence: US)
  Receive Date: 20190218
  Receipt Date: 20190301
  Transmission Date: 20190418
  Serious: Yes (Other)
  Sender: FDA-Public Use
  Company Number: US-IMPAX LABORATORIES, LLC-2019-IPXL-00498

PATIENT
  Age: 16 Year
  Sex: Male

DRUGS (2)
  1. GENESIS - ENERGY DRINK [Interacting]
     Active Substance: DIETARY SUPPLEMENT
     Indication: FATIGUE
     Dosage: UNK UNK, 2 /DAY
     Route: 065
     Dates: start: 201311
  2. DIVALPROEX SODIUM ER [Suspect]
     Active Substance: DIVALPROEX SODIUM
     Indication: EPILEPSY
     Dosage: 1000 MILLIGRAM, BEDTIME
     Route: 048

REACTIONS (3)
  - Seizure [Recovered/Resolved]
  - Herbal interaction [Unknown]
  - Anticonvulsant drug level decreased [None]

NARRATIVE: CASE EVENT DATE: 201401
